FAERS Safety Report 15066558 (Version 1)
Quarter: 2018Q2

REPORT INFORMATION
  Report Type: Spontaneous
  Country: US (occurrence: US)
  Receive Date: 20180606
  Receipt Date: 20180606
  Transmission Date: 20180711
  Serious: Yes (Hospitalization)
  Sender: FDA-Public Use
  Company Number: None

PATIENT
  Age: 59 Year
  Sex: Male

DRUGS (1)
  1. CAPECITABINE 500MG WEST-WARD [Suspect]
     Active Substance: CAPECITABINE
     Indication: COLON CANCER
     Route: 048
     Dates: start: 20180314, end: 20180506

REACTIONS (7)
  - Pain in extremity [None]
  - Intestinal obstruction [None]
  - Gait disturbance [None]
  - Pyrexia [None]
  - Diarrhoea [None]
  - Gastrointestinal infection [None]
  - Vomiting [None]

NARRATIVE: CASE EVENT DATE: 20180426
